FAERS Safety Report 8322424-2 (Version None)
Quarter: 2012Q1

REPORT INFORMATION
  Report Type: 
  Country: None (occurrence: None)
  Receive Date: 20120315
  Receipt Date: 20110607
  Transmission Date: 20120608
  Serious: No
  Sender: FDA-Public Use
  Company Number: PHHY2011US32007

PATIENT
  Age: 49 Year
  Sex: Female
  Weight: 67.6 kg

DRUGS (7)
  1. TREXIMET (NAPROXEN SODIUM, SUMATRIPTAN SUCCINATE) TABLET [Concomitant]
  2. TYLENOL PM (DIPHENHYDRAMINE, PARACETAMOL) TABLET [Concomitant]
  3. AZO-100 (PHENAZOPYRIDINE HYDROCHLORIDE) [Concomitant]
  4. ACETAMINOPHEN [Concomitant]
  5. GILENYA [Suspect]
     Indication: MULTIPLE SCLEROSIS
     Dosage: 0.5 MG, QD, ORAL
     Route: 048
     Dates: start: 20110406
  6. SUMATRIPTAN SUCCINATE (IMITREX) [Concomitant]
  7. LORTAB [Concomitant]

REACTIONS (2)
  - BRADYCARDIA [None]
  - BREAST PAIN [None]
